FAERS Safety Report 19065379 (Version 1)
Quarter: 2021Q1

REPORT INFORMATION
  Report Type: Report from Study
  Country: BR (occurrence: BR)
  Receive Date: 20210327
  Receipt Date: 20210327
  Transmission Date: 20210420
  Serious: Yes (Other)
  Sender: FDA-Public Use
  Company Number: BR-TAKEDA-2021TUS018846

PATIENT
  Sex: Male

DRUGS (2)
  1. HEMO?8R [Suspect]
     Active Substance: ANTIHEMOPHILIC FACTOR, HUMAN RECOMBINANT
     Indication: FACTOR VIII DEFICIENCY
     Dosage: 2000 INTERNATIONAL UNIT, 3/WEEK
     Route: 042
     Dates: start: 2010
  2. HEMO?8R [Suspect]
     Active Substance: ANTIHEMOPHILIC FACTOR, HUMAN RECOMBINANT
     Dosage: 3000 INTERNATIONAL UNIT
     Route: 042

REACTIONS (9)
  - Haemarthrosis [Unknown]
  - Muscle rigidity [Unknown]
  - Incorrect product administration duration [Unknown]
  - Swelling [Unknown]
  - Joint swelling [Unknown]
  - Dyskinesia [Unknown]
  - Haemorrhage [Unknown]
  - Peripheral swelling [Unknown]
  - Pain [Unknown]
